FAERS Safety Report 8532851-6 (Version None)
Quarter: 2012Q3

REPORT INFORMATION
  Report Type: 
  Country: None (occurrence: None)
  Receive Date: 20120711
  Receipt Date: 20120626
  Transmission Date: 20120928
  Serious: Yes (Other)
  Sender: FDA-Public Use
  Company Number: JPI-P-022442

PATIENT
  Age: 29 Year
  Sex: Female
  Weight: 65.7716 kg

DRUGS (5)
  1. METHYLPHHENIDATE HYDROCHLORIDE [Concomitant]
  2. XYREM [Suspect]
     Indication: SOMNOLENCE
     Dosage: SEE IMAGE
     Route: 048
     Dates: start: 20090113, end: 20090101
  3. XYREM [Suspect]
     Indication: CATAPLEXY
     Dosage: SEE IMAGE
     Route: 048
     Dates: start: 20090113, end: 20090101
  4. XYREM [Suspect]
     Indication: SOMNOLENCE
     Dosage: SEE IMAGE
     Route: 048
     Dates: start: 20100601, end: 20100101
  5. XYREM [Suspect]
     Indication: CATAPLEXY
     Dosage: SEE IMAGE
     Route: 048
     Dates: start: 20100601, end: 20100101

REACTIONS (6)
  - HAEMORRHAGE [None]
  - HUNGER [None]
  - HYPERPHAGIA [None]
  - MATERNAL EXPOSURE DURING PREGNANCY [None]
  - FOOT FRACTURE [None]
  - PREGNANCY [None]
